FAERS Safety Report 9977835 (Version 2)
Quarter: 2014Q1

REPORT INFORMATION
  Report Type: Report from Study
  Country: US (occurrence: US)
  Receive Date: 20140306
  Receipt Date: 20140306
  Transmission Date: 20141002
  Serious: Yes (Other)
  Sender: FDA-Public Use
  Company Number: US-ABBVIE-13P-163-1149002-00

PATIENT
  Age: 35 Year
  Sex: Male

DRUGS (2)
  1. HUMIRA [Suspect]
     Indication: CROHN^S DISEASE
     Route: 058
     Dates: start: 2011
  2. UNKNOWN PAIN MEDICATION [Concomitant]
     Indication: ABDOMINAL PAIN

REACTIONS (5)
  - Foot fracture [Recovering/Resolving]
  - Fall [Recovering/Resolving]
  - Haemorrhage [Recovered/Resolved]
  - Pain [Recovering/Resolving]
  - Impaired healing [Unknown]
